FAERS Safety Report 5838239-0 (Version None)
Quarter: 2008Q3

REPORT INFORMATION
  Report Type: 
  Country: None (occurrence: None)
  Receive Date: 20080808
  Receipt Date: 20080801
  Transmission Date: 20090109
  Serious: Yes (Life-Threatening)
  Sender: FDA-Public Use
  Company Number: GB-ALLERGAN-0809558US

PATIENT
  Sex: Female

DRUGS (5)
  1. BRIMONIDINE UNK [Suspect]
     Indication: GLAUCOMA
     Dosage: 1 DF, UNK
     Route: 047
  2. CO-CODAMOL [Concomitant]
     Indication: DRUG USE FOR UNKNOWN INDICATION
  3. COSOPT [Concomitant]
     Indication: DRUG USE FOR UNKNOWN INDICATION
  4. DIAMOX SRC [Concomitant]
     Indication: DRUG USE FOR UNKNOWN INDICATION
  5. MAXIDEX [Concomitant]
     Indication: DRUG USE FOR UNKNOWN INDICATION

REACTIONS (2)
  - ATRIAL FIBRILLATION [None]
  - MYOCARDIAL INFARCTION [None]
